FAERS Safety Report 21503523 (Version 1)
Quarter: 2022Q4

REPORT INFORMATION
  Report Type: Spontaneous
  Country: US (occurrence: None)
  Receive Date: 20221024
  Receipt Date: 20221024
  Transmission Date: 20230112
  Serious: No
  Sender: FDA-Public Use
  Company Number: None

PATIENT
  Age: 80 Year
  Sex: Male
  Weight: 61.23 kg

DRUGS (8)
  1. ERLEADA [Suspect]
     Active Substance: APALUTAMIDE
     Indication: Prostate cancer
     Dosage: FREQUENCY : DAILY;?
     Route: 048
  2. ASPIRIN [Concomitant]
  3. FELODIPINE [Concomitant]
  4. LUPRON [Concomitant]
     Active Substance: LEUPROLIDE ACETATE
  5. MELATONIN [Concomitant]
     Active Substance: MELATONIN
  6. PREDNISONE [Concomitant]
  7. PROSTEON BONE HEALTH [Concomitant]
  8. ROSUVASTATIN [Concomitant]

REACTIONS (1)
  - Prostatic specific antigen increased [None]
